FAERS Safety Report 13427092 (Version 1)
Quarter: 2017Q2

REPORT INFORMATION
  Report Type: Spontaneous
  Country: US (occurrence: US)
  Receive Date: 20170411
  Receipt Date: 20170411
  Transmission Date: 20170830
  Serious: Yes (Hospitalization)
  Sender: FDA-Public Use
  Company Number: None

PATIENT
  Age: 60 Year
  Sex: Male

DRUGS (20)
  1. COSENTYX [Suspect]
     Active Substance: SECUKINUMAB
     Indication: PSORIATIC ARTHROPATHY
     Route: 058
     Dates: start: 201612, end: 20170403
  2. LOSARTAN POTASSIUM. [Concomitant]
     Active Substance: LOSARTAN POTASSIUM
  3. OLMESA MEDOX [Concomitant]
  4. PROAIR HFA [Concomitant]
     Active Substance: ALBUTEROL SULFATE
  5. PREDNISONE. [Concomitant]
     Active Substance: PREDNISONE
  6. OXYCODONE [Concomitant]
     Active Substance: OXYCODONE
  7. BRILINTA [Concomitant]
     Active Substance: TICAGRELOR
  8. CELECOXIB. [Concomitant]
     Active Substance: CELECOXIB
  9. ESOMEPRAZOLE [Concomitant]
     Active Substance: ESOMEPRAZOLE
  10. CIMZIA [Concomitant]
     Active Substance: CERTOLIZUMAB PEGOL
  11. METHADONE [Concomitant]
     Active Substance: METHADONE HYDROCHLORIDE
  12. NEXIUM [Concomitant]
     Active Substance: ESOMEPRAZOLE MAGNESIUM
  13. FLUTICASONE. [Concomitant]
     Active Substance: FLUTICASONE
  14. VENTOLIN [Concomitant]
     Active Substance: ALBUTEROL SULFATE
  15. PROVENTIL [Concomitant]
     Active Substance: ALBUTEROL
  16. KETOROLAC [Concomitant]
     Active Substance: KETOROLAC\KETOROLAC TROMETHAMINE
  17. ATORVASTATIN [Concomitant]
     Active Substance: ATORVASTATIN
  18. XARELTO [Concomitant]
     Active Substance: RIVAROXABAN
  19. BENICAR [Concomitant]
     Active Substance: OLMESARTAN MEDOXOMIL
  20. TAMSULOSIN [Concomitant]
     Active Substance: TAMSULOSIN

REACTIONS (2)
  - Myocardial infarction [None]
  - Thrombosis [None]

NARRATIVE: CASE EVENT DATE: 20170403
